FAERS Safety Report 15043351 (Version 5)
Quarter: 2018Q4

REPORT INFORMATION
  Report Type: Spontaneous
  Country: DE (occurrence: DE)
  Receive Date: 20180621
  Receipt Date: 20181017
  Transmission Date: 20190204
  Serious: Yes (Life-Threatening, Other)
  Sender: FDA-Public Use
  Company Number: DE-PFIZER INC-2018243851

PATIENT
  Age: 59 Year
  Sex: Female

DRUGS (11)
  1. IDARUBICIN [Suspect]
     Active Substance: IDARUBICIN
     Dosage: 21.6 MG, QD
     Route: 042
     Dates: start: 20150108, end: 20150108
  2. BUSILVEX [Suspect]
     Active Substance: BUSULFAN
     Indication: BONE MARROW CONDITIONING REGIMEN
     Dosage: 232 MG, QD
     Route: 042
     Dates: start: 20150615, end: 20150616
  3. IDARUBICIN [Suspect]
     Active Substance: IDARUBICIN
     Dosage: 21.6 MG, QD
     Route: 042
     Dates: start: 20150110, end: 20150110
  4. CYTARABINE. [Suspect]
     Active Substance: CYTARABINE
     Dosage: 180 MG, QD
     Route: 042
     Dates: start: 20150106, end: 20150112
  5. CYTARABINE. [Suspect]
     Active Substance: CYTARABINE
     Indication: ACUTE MYELOID LEUKAEMIA
     Dosage: 190 MG, QD
     Route: 042
     Dates: start: 20141128, end: 20141204
  6. IDARUBICIN [Suspect]
     Active Substance: IDARUBICIN
     Dosage: 22.8 MG, QD
     Route: 042
     Dates: start: 20141130, end: 20141130
  7. FLUDARABINE [Suspect]
     Active Substance: FLUDARABINE PHOSPHATE
     Indication: BONE MARROW CONDITIONING REGIMEN
     Dosage: 55 MG, QD
     Route: 042
     Dates: start: 20150613, end: 20150617
  8. IDARUBICIN [Suspect]
     Active Substance: IDARUBICIN
     Indication: ACUTE MYELOID LEUKAEMIA
     Dosage: 22.8 MG, QD
     Route: 042
     Dates: start: 20141128, end: 20141128
  9. IDARUBICIN [Suspect]
     Active Substance: IDARUBICIN
     Dosage: 21.6 MG, QD
     Route: 042
     Dates: start: 20150106, end: 20150106
  10. ATG RABBIT [Suspect]
     Active Substance: LAPINE T-LYMPHOCYTE IMMUNE GLOBULIN
     Indication: BONE MARROW CONDITIONING REGIMEN
     Dosage: 720 MG, QD
     Route: 042
     Dates: start: 20150615, end: 20150617
  11. IDARUBICIN [Suspect]
     Active Substance: IDARUBICIN
     Dosage: 21.6 MG, QD
     Route: 042
     Dates: start: 20141202, end: 20141202

REACTIONS (2)
  - Dedifferentiated liposarcoma [Recovered/Resolved]
  - Second primary malignancy [Recovered/Resolved]

NARRATIVE: CASE EVENT DATE: 20170727
